FAERS Safety Report 5763877-3 (Version None)
Quarter: 2008Q2

REPORT INFORMATION
  Report Type: 
  Country: None (occurrence: None)
  Receive Date: 20080606
  Receipt Date: 20080606
  Transmission Date: 20081010
  Serious: No
  Sender: FDA-Public Use
  Company Number: None

PATIENT

DRUGS (2)
  1. ADENOSINE [Suspect]
     Dosage: 6MG/2ML  IV BOLUS
     Route: 040
     Dates: start: 20080515, end: 20080605
  2. ADENOSINE [Suspect]
     Dosage: 6MG/2ML  IV BOLUS
     Route: 040
     Dates: start: 20080604, end: 20080605

REACTIONS (1)
  - DEVICE FAILURE [None]
